FAERS Safety Report 14380356 (Version 2)
Quarter: 2018Q1

REPORT INFORMATION
  Report Type: Spontaneous
  Country: DE (occurrence: DE)
  Receive Date: 20180112
  Receipt Date: 20180116
  Transmission Date: 20180509
  Serious: Yes (Hospitalization)
  Sender: FDA-Public Use
  Company Number: DE-JNJFOC-20180110421

PATIENT
  Age: 72 Year
  Sex: Female

DRUGS (9)
  1. SPIRIVA [Concomitant]
     Active Substance: TIOTROPIUM BROMIDE MONOHYDRATE
     Route: 065
  2. MAGNESIUM VERLA [Concomitant]
     Active Substance: MAGNESIUM
     Route: 065
  3. ALLOPURINOL. [Concomitant]
     Active Substance: ALLOPURINOL
     Route: 065
  4. EFEROX JOD [Concomitant]
     Route: 065
  5. FOLSAN [Concomitant]
     Active Substance: FOLIC ACID
     Route: 065
  6. TOREM [Concomitant]
     Active Substance: TORSEMIDE
     Route: 065
  7. ACICLOVIR [Concomitant]
     Active Substance: ACYCLOVIR
     Route: 065
  8. ZINK SELEN [Concomitant]
     Route: 065
  9. IMBRUVICA [Suspect]
     Active Substance: IBRUTINIB
     Indication: CHRONIC LYMPHOCYTIC LEUKAEMIA
     Route: 048
     Dates: start: 201710, end: 201712

REACTIONS (1)
  - Guillain-Barre syndrome [Not Recovered/Not Resolved]

NARRATIVE: CASE EVENT DATE: 20171204
